FAERS Safety Report 6621769-1 (Version None)
Quarter: 2010Q1

REPORT INFORMATION
  Report Type: 
  Country: None (occurrence: None)
  Receive Date: 20100309
  Receipt Date: 20100225
  Transmission Date: 20100710
  Serious: Yes (Life-Threatening, Hospitalization, Other)
  Sender: FDA-Public Use
  Company Number: AU-GENENTECH-296433

PATIENT
  Sex: Male
  Weight: 81 kg

DRUGS (7)
  1. BLINDED PLACEBO [Suspect]
     Indication: DIABETIC RETINAL OEDEMA
     Dosage: UNK
     Dates: start: 20081023, end: 20090324
  2. BLINDED RANIBIZUMAB [Suspect]
     Indication: DIABETIC RETINAL OEDEMA
     Dosage: UNK
     Dates: start: 20081023, end: 20090324
  3. CADUET [Concomitant]
     Indication: DRUG USE FOR UNKNOWN INDICATION
  4. ATENOLOL [Concomitant]
     Indication: DRUG USE FOR UNKNOWN INDICATION
  5. AVAPRO [Concomitant]
     Indication: DRUG USE FOR UNKNOWN INDICATION
  6. METFORMIN HYDROCHLORIDE [Concomitant]
     Indication: DRUG USE FOR UNKNOWN INDICATION
  7. DIAMICRON [Concomitant]
     Indication: DRUG USE FOR UNKNOWN INDICATION

REACTIONS (6)
  - HAEMATOMA [None]
  - HYDROCEPHALUS [None]
  - INTRAVENTRICULAR HAEMORRHAGE [None]
  - SUBARACHNOID HAEMORRHAGE [None]
  - SUBDURAL HAEMORRHAGE [None]
  - VENTRICULAR DRAINAGE [None]
